FAERS Safety Report 9651886 (Version 3)
Quarter: 2014Q3

REPORT INFORMATION
  Report Type: Spontaneous
  Country: JP (occurrence: JP)
  Receive Date: 20131029
  Receipt Date: 20140909
  Transmission Date: 20150326
  Serious: Yes (Life-Threatening, Hospitalization, Other)
  Sender: FDA-Public Use
  Company Number: JP-TAKEDA-0237322

PATIENT
  Age: 79 Year
  Sex: Male

DRUGS (7)
  1. MUCOSTA [Concomitant]
     Active Substance: REBAMIPIDE
     Indication: HEPATIC CANCER
     Dosage: 100 MG, TID
     Route: 048
     Dates: start: 20130310, end: 20130320
  2. NEOPHYLLIN                         /00003701/ [Concomitant]
     Indication: EMPHYSEMA
     Dosage: 250 MG, QD
     Dates: start: 20130313, end: 20130313
  3. GAMMA GLOBULIN [Concomitant]
     Active Substance: IMMUNE GLOBULIN NOS
  4. CEFAPICOL [Concomitant]
     Active Substance: UNSPECIFIED INGREDIENT
     Indication: PROPHYLAXIS
     Dosage: 1 G, BID
     Route: 042
     Dates: start: 20130308, end: 20130309
  5. PARIET [Concomitant]
     Active Substance: RABEPRAZOLE SODIUM
     Indication: HEPATIC CANCER
     Dosage: 10 MG, QD
     Route: 048
     Dates: start: 201303
  6. LETRAC [Concomitant]
     Indication: HEPATIC CANCER
     Dosage: 10 MG, TID
     Route: 048
     Dates: start: 20130310, end: 20130320
  7. TACHOSIL [Suspect]
     Active Substance: FIBRINOGEN HUMAN\THROMBIN HUMAN
     Indication: PROPHYLAXIS
     Dosage: 3 SHEETS /1DAY
     Route: 065
     Dates: start: 20130308

REACTIONS (4)
  - Abdominal abscess [Recovering/Resolving]
  - Delirium [Recovered/Resolved]
  - Lung disorder [Recovered/Resolved]
  - Post procedural bile leak [Recovering/Resolving]

NARRATIVE: CASE EVENT DATE: 20130309
